FAERS Safety Report 7756127-X (Version None)
Quarter: 2011Q3

REPORT INFORMATION
  Report Type: 
  Country: None (occurrence: None)
  Receive Date: 20110915
  Receipt Date: 20110915
  Transmission Date: 20111222
  Serious: No
  Sender: FDA-Public Use
  Company Number: None

PATIENT
  Sex: Female

DRUGS (1)
  1. ENBREL 60MG AMGEN [Suspect]
     Indication: RHEUMATOID ARTHRITIS
     Dosage: 50MG QW SQ
     Route: 058
     Dates: start: 20110315

REACTIONS (4)
  - INJECTION SITE REACTION [None]
  - THROAT TIGHTNESS [None]
  - DYSPHONIA [None]
  - PALPITATIONS [None]
